FAERS Safety Report 10602188 (Version 1)
Quarter: 2014Q4

REPORT INFORMATION
  Report Type: Spontaneous
  Country: ES (occurrence: ES)
  Receive Date: 20141124
  Receipt Date: 20141124
  Transmission Date: 20150529
  Serious: Yes (Hospitalization, Other)
  Sender: FDA-Public Use
  Company Number: ES-WATSON-2014-24887

PATIENT
  Age: 36 Year
  Sex: Male

DRUGS (1)
  1. EMLA [Suspect]
     Active Substance: LIDOCAINE\PRILOCAINE
     Indication: LOCAL ANAESTHESIA
     Dosage: 270 G, TOTAL
     Route: 061

REACTIONS (2)
  - Methaemoglobinaemia [Recovered/Resolved]
  - Overdose [Recovered/Resolved]
